FAERS Safety Report 7366396-6 (Version None)
Quarter: 2011Q1

REPORT INFORMATION
  Report Type: 
  Country: None (occurrence: None)
  Receive Date: 20110322
  Receipt Date: 20110311
  Transmission Date: 20110831
  Serious: Yes (Hospitalization)
  Sender: FDA-Public Use
  Company Number: US-BRISTOL-MYERS SQUIBB COMPANY-15601289

PATIENT
  Age: 62 Year
  Sex: Male
  Weight: 71 kg

DRUGS (19)
  1. CETUXIMAB [Suspect]
     Indication: NON-SMALL CELL LUNG CANCER
     Dosage: NO OF INFU=1
     Route: 042
     Dates: start: 20110228, end: 20110228
  2. ASPIRIN [Concomitant]
     Indication: PROPHYLAXIS
     Route: 048
     Dates: end: 20110228
  3. ACETAMINOPHEN AND HYDROCODONE BITARTRATE [Concomitant]
     Indication: PAIN
     Dosage: 1DF= 500MG/7.5MG
     Route: 048
     Dates: end: 20110301
  4. CISPLATIN [Suspect]
     Indication: NON-SMALL CELL LUNG CANCER
     Dosage: NO OF INFU=1
     Route: 042
     Dates: start: 20110228, end: 20110228
  5. OXYGEN [Concomitant]
     Indication: DYSPNOEA
     Route: 055
  6. NEUPOGEN [Concomitant]
     Indication: ADENOCARCINOMA
     Route: 065
     Dates: start: 20110228
  7. HYDREA [Concomitant]
     Indication: POLYCYTHAEMIA VERA
     Dosage: 2 CAP= SU,MON,WE, FR,SA AND 1 CAP=TU, THU.
     Route: 048
     Dates: end: 20110301
  8. OMEPRAZOLE [Concomitant]
     Indication: GASTROOESOPHAGEAL REFLUX DISEASE
     Route: 048
     Dates: end: 20110301
  9. FOLIC ACID [Concomitant]
     Indication: MEDICAL DIET
  10. VITAMIN B-12 [Concomitant]
     Indication: MEDICAL DIET
     Route: 048
  11. ZOCOR [Concomitant]
     Route: 048
  12. DEXAMETHASONE [Concomitant]
     Indication: INFLAMMATION
     Dosage: 4MG, 2*DAY BEFORE DAY OF DAY AFTER ALIMTA
     Route: 048
     Dates: end: 20110301
  13. MEGACE [Concomitant]
     Dosage: STRENGHT=40MG/ML
     Route: 048
  14. PEMETREXED DISODIUM [Suspect]
     Indication: NON-SMALL CELL LUNG CANCER
     Dosage: NO OF INFU=1
     Route: 042
     Dates: start: 20110228, end: 20110228
  15. ENULOSE [Concomitant]
     Dosage: 10GR/15 ML SOLUTION, 30CC
     Route: 048
  16. LEXAPRO [Concomitant]
     Indication: DEPRESSION
     Route: 048
     Dates: end: 20110301
  17. SIMVASTATIN [Concomitant]
     Indication: BLOOD CHOLESTEROL ABNORMAL
     Route: 048
     Dates: end: 20110301
  18. MIRTAZAPINE [Concomitant]
     Dosage: 1 TAB DAILY*7,THEN 2 TAB DAILY AT BED TIME
     Route: 048
  19. PROCHLORPERAZINE [Concomitant]
     Indication: NAUSEA
     Dosage: 10MG TAB, 1 TAB EVERY 4-6 HR AS NEEDED
     Route: 048

REACTIONS (2)
  - DYSPNOEA [None]
  - TROPONIN INCREASED [None]
